FAERS Safety Report 5895111-8 (Version None)
Quarter: 2008Q3

REPORT INFORMATION
  Report Type: 
  Country: None (occurrence: None)
  Receive Date: 20080924
  Receipt Date: 20080915
  Transmission Date: 20090109
  Serious: Yes (Hospitalization)
  Sender: FDA-Public Use
  Company Number: DE-ROCHE-586742

PATIENT
  Sex: Male

DRUGS (5)
  1. CAPECITABINE [Suspect]
     Route: 065
     Dates: start: 20071101
  2. CAPECITABINE [Suspect]
     Dosage: REDUCED DOSAGE
     Route: 065
     Dates: end: 20080901
  3. AVASTIN [Suspect]
     Dosage: DOSAGE REGIMEN: 5 MG/KG BODY WEIGHT
     Route: 065
     Dates: start: 20070401, end: 20080901
  4. OXALIPLATIN [Concomitant]
     Dosage: DRUG: (CAPOX)
     Dates: start: 20071101
  5. FOLFIRI [Concomitant]
     Dates: start: 20070401, end: 20071101

REACTIONS (6)
  - DISEASE PROGRESSION [None]
  - HAEMORRHAGE SUBCUTANEOUS [None]
  - MYOSCLEROSIS [None]
  - PALMAR-PLANTAR ERYTHRODYSAESTHESIA SYNDROME [None]
  - POLYNEUROPATHY [None]
  - RHABDOMYOLYSIS [None]
